FAERS Safety Report 9104194 (Version 2)
Quarter: 2013Q1

REPORT INFORMATION
  Report Type: Report from Study
  Country: FR (occurrence: FR)
  Receive Date: 20130219
  Receipt Date: 20130222
  Transmission Date: 20140127
  Serious: Yes (Hospitalization)
  Sender: FDA-Public Use
  Company Number: PHHY2013FR015193

PATIENT
  Age: 74 Year
  Sex: Female
  Weight: 87 kg

DRUGS (12)
  1. ACLASTA [Suspect]
     Indication: OSTEOPOROTIC FRACTURE
     Dosage: UNK UKN, UNK
     Route: 042
     Dates: start: 201202
  2. DAFALGAN [Concomitant]
     Dosage: UNK UKN, UNK
     Dates: start: 2005
  3. AMIODARONE [Concomitant]
     Indication: ARRHYTHMIA
     Dosage: UNK UKN, UNK
     Dates: start: 2007
  4. FUROSEMIDE [Concomitant]
     Indication: HYPERTENSION
     Dosage: UNK UKN, UNK
     Dates: start: 2007
  5. DIFFU K [Concomitant]
     Dosage: UNK UKN, UNK
     Dates: start: 2007
  6. RILMENIDINE [Concomitant]
     Dosage: UNK UKN, UNK
     Dates: start: 2008
  7. KARDEGIC [Concomitant]
     Indication: ANGIOPATHY
     Dosage: UNK UKN, UNK
     Dates: start: 2008
  8. SIMVASTATINE [Concomitant]
     Indication: DYSLIPIDAEMIA
     Dosage: UNK UKN, UNK
     Dates: start: 2008
  9. PANTOPRAZOLE [Concomitant]
     Indication: DYSPEPSIA
     Dosage: UNK UKN, UNK
     Dates: start: 2008
  10. LAROXYL [Concomitant]
     Indication: DEPRESSION
     Dosage: UNK UKN, UNK
     Dates: start: 2010
  11. TRAMADOL [Concomitant]
     Dosage: UNK UKN, UNK
     Dates: start: 2010
  12. VITAMIN D3 [Concomitant]
     Dosage: UNK UKN, UNK
     Dates: start: 2011

REACTIONS (2)
  - Cardiac failure [Not Recovered/Not Resolved]
  - Pulmonary oedema [Not Recovered/Not Resolved]
